FAERS Safety Report 4429613-8 (Version None)
Quarter: 2004Q3

REPORT INFORMATION
  Report Type: 
  Country: None (occurrence: None)
  Receive Date: 20040818
  Receipt Date: 20040809
  Transmission Date: 20050211
  Serious: Yes (Death, Hospitalization)
  Sender: FDA-Public Use
  Company Number: 2004054732

PATIENT
  Age: 78 Year
  Sex: Male

DRUGS (4)
  1. CARDURA [Suspect]
     Indication: BENIGN PROSTATIC HYPERPLASIA
     Dosage: 4 MG (4 MG, 1 IN 1 D), ORAL
     Route: 048
     Dates: start: 20021201, end: 20031209
  2. ENALAPRIL MALEATE [Concomitant]
  3. PREDNISONE [Concomitant]
  4. MELPHALAN (MELPHALAN) [Concomitant]

REACTIONS (4)
  - BLOOD PRESSURE INCREASED [None]
  - CONDITION AGGRAVATED [None]
  - MULTIPLE MYELOMA [None]
  - MYOCARDIAL INFARCTION [None]
